FAERS Safety Report 6162895-3 (Version None)
Quarter: 2009Q2

REPORT INFORMATION
  Report Type: 
  Country: None (occurrence: None)
  Receive Date: 20090421
  Receipt Date: 20090120
  Transmission Date: 20091009
  Serious: No
  Sender: FDA-Public Use
  Company Number: US-ASTRAZENECA-2009UW01845

PATIENT
  Age: 73 Year
  Sex: Male
  Weight: 56.7 kg

DRUGS (3)
  1. METOPROLOL SUCCINATE [Suspect]
     Indication: HYPERTENSION
     Route: 048
     Dates: start: 20090110
  2. SIMVASTATIN [Concomitant]
     Indication: HYPERCHOLESTEROLAEMIA
  3. VILASAXINE [Concomitant]
     Indication: DEPRESSION

REACTIONS (1)
  - BLOOD PRESSURE AMBULATORY INCREASED [None]
